FAERS Safety Report 10371144 (Version 1)
Quarter: 2014Q1

REPORT INFORMATION
  Report Type: Spontaneous
  Country: US (occurrence: None)
  Receive Date: 20140306
  Receipt Date: 20140306
  Transmission Date: 20141002
  Serious: Yes (Hospitalization, Other)
  Sender: FDA-Public Use
  Company Number: 163-21880-13073643

PATIENT
  Age: 88 Year
  Sex: Male
  Weight: 86.64 kg

DRUGS (6)
  1. REVLIMID (LENALIDOMIDE) (10 MILLIGRAM, CAPSULES) [Suspect]
     Indication: MYELODYSPLASTIC SYNDROME
     Route: 048
     Dates: start: 20130702, end: 20130704
  2. LEVOTHYROXINE [Concomitant]
  3. OMEPRAZOLE [Concomitant]
  4. ASPIRIN (ACETYLSALICYLIC ACID) [Concomitant]
  5. MULTIVITAMINS [Concomitant]
  6. IRON [Concomitant]

REACTIONS (5)
  - Gait disturbance [None]
  - Oedema peripheral [None]
  - Pain in extremity [None]
  - Pyrexia [None]
  - Anaemia [None]
